FAERS Safety Report 21658924 (Version 1)
Quarter: 2022Q4

REPORT INFORMATION
  Report Type: Spontaneous
  Country: US (occurrence: None)
  Receive Date: 20221128
  Receipt Date: 20221128
  Transmission Date: 20230113
  Serious: Yes (Hospitalization)
  Sender: FDA-Public Use
  Company Number: None

PATIENT
  Age: 46 Year
  Sex: Male

DRUGS (1)
  1. DEFEROXAMINE MESYLATE [Suspect]
     Active Substance: DEFEROXAMINE MESYLATE
     Indication: Sickle cell disease
     Dosage: FREQUENCY : MONTHLY;?
     Route: 042
     Dates: start: 20210719

REACTIONS (1)
  - Pneumonia [None]

NARRATIVE: CASE EVENT DATE: 20221112
